FAERS Safety Report 5809526-7 (Version None)
Quarter: 2008Q3

REPORT INFORMATION
  Report Type: 
  Country: None (occurrence: None)
  Receive Date: 20080715
  Receipt Date: 20080704
  Transmission Date: 20090109
  Serious: Yes (Hospitalization, Other)
  Sender: FDA-Public Use
  Company Number: FR-NOVOPROD-277298

PATIENT
  Age: 75 Year
  Sex: Male

DRUGS (10)
  1. NOVORAPID [Suspect]
     Indication: DRUG USE FOR UNKNOWN INDICATION
     Dosage: 40 IU, QD
  2. NOVORAPID [Suspect]
     Dates: start: 20080701
  3. LANTUS [Concomitant]
     Route: 058
  4. NOVONORM [Concomitant]
     Route: 058
     Dates: end: 20080601
  5. AVLOCARDYL                         /00030001/ [Concomitant]
  6. EQUANIL [Concomitant]
     Dosage: 250 + 400 PM
  7. LASIX [Concomitant]
     Dosage: 40 UNK, UNK
  8. XATRAL                             /00975301/ [Concomitant]
     Dosage: 10 UNK, UNK
  9. PROSCAR [Concomitant]
  10. ATARAX [Concomitant]

REACTIONS (3)
  - AGITATION [None]
  - DYSARTHRIA [None]
  - HYPOGLYCAEMIA [None]
